FAERS Safety Report 12830292 (Version 1)
Quarter: 2016Q4

REPORT INFORMATION
  Report Type: Spontaneous
  Country: US (occurrence: US)
  Receive Date: 20161007
  Receipt Date: 20161007
  Transmission Date: 20170207
  Serious: No
  Sender: FDA-Public Use
  Company Number: US-SA-2016SA164386

PATIENT
  Age: 45 Year
  Sex: Female

DRUGS (11)
  1. ESTRADIOL. [Concomitant]
     Active Substance: ESTRADIOL
     Dosage: DIS
  2. HYDROCODONE BITARTRATE AND ACETAMINOPHEN [Concomitant]
     Active Substance: ACETAMINOPHEN\HYDROCODONE BITARTRATE
     Dosage: DOSE: 10-650 MG
  3. TRAZODONE [Concomitant]
     Active Substance: TRAZODONE HYDROCHLORIDE
  4. OXYBUTYNIN [Concomitant]
     Active Substance: OXYBUTYNIN
     Dosage: ER
  5. CLONAZEPAM. [Concomitant]
     Active Substance: CLONAZEPAM
  6. DEXTROMETHORPHAN HYDROBROMIDE. [Concomitant]
     Active Substance: DEXTROMETHORPHAN HYDROBROMIDE
     Dosage: POW
  7. LEVETIRACETAM. [Concomitant]
     Active Substance: LEVETIRACETAM
  8. AUBAGIO [Suspect]
     Active Substance: TERIFLUNOMIDE
     Indication: MULTIPLE SCLEROSIS
     Route: 048
     Dates: start: 20160902
  9. GABAPENTIN. [Concomitant]
     Active Substance: GABAPENTIN
  10. ZOFRAN [Concomitant]
     Active Substance: ONDANSETRON HYDROCHLORIDE
  11. BACLOFEN. [Concomitant]
     Active Substance: BACLOFEN

REACTIONS (4)
  - Dreamy state [Not Recovered/Not Resolved]
  - Asthenia [Not Recovered/Not Resolved]
  - Disorientation [Not Recovered/Not Resolved]
  - Malaise [Not Recovered/Not Resolved]

NARRATIVE: CASE EVENT DATE: 20160902
